FAERS Safety Report 19445400 (Version 1)
Quarter: 2021Q2

REPORT INFORMATION
  Report Type: Spontaneous
  Country: GR (occurrence: GR)
  Receive Date: 20210622
  Receipt Date: 20210622
  Transmission Date: 20210717
  Serious: Yes (Hospitalization, Other)
  Sender: FDA-Public Use
  Company Number: GR-SA-2021SA188074

PATIENT
  Age: 49 Year
  Sex: Male

DRUGS (12)
  1. METOPROLOL. [Concomitant]
     Active Substance: METOPROLOL
     Indication: HYPERTENSION
  2. INSULIN HUMAN [Concomitant]
     Active Substance: INSULIN HUMAN
     Indication: DIABETES MELLITUS
     Dosage: A MIXTURE OF AN INTERMEDIATE?ACTING HUMAN INSULIN ANALOG WITH A RAPIDACTING HUMAN INSULIN ANALOG.
  3. ROSUVASTATIN. [Interacting]
     Active Substance: ROSUVASTATIN
     Indication: DYSLIPIDAEMIA
  4. TORASEMIDE [Interacting]
     Active Substance: TORSEMIDE
     Indication: HYPERTENSION
  5. ACETYLSALICYLIC ACID [Concomitant]
     Active Substance: ASPIRIN
  6. COLCHICINE. [Interacting]
     Active Substance: COLCHICINE
     Indication: PERICARDITIS
  7. EZETIMIBE. [Concomitant]
     Active Substance: EZETIMIBE
     Indication: DYSLIPIDAEMIA
     Dosage: 10 MG
  8. MOXONIDINE [Concomitant]
     Active Substance: MOXONIDINE
  9. ROSUVASTATIN. [Interacting]
     Active Substance: ROSUVASTATIN
  10. COLCHICINE. [Interacting]
     Active Substance: COLCHICINE
  11. IRBESARTAN. [Suspect]
     Active Substance: IRBESARTAN
     Indication: HYPERTENSION
  12. AMLODIPINE [Concomitant]
     Active Substance: AMLODIPINE BESYLATE

REACTIONS (4)
  - Musculoskeletal toxicity [Recovered/Resolved]
  - Renal impairment [Recovered/Resolved]
  - Rhabdomyolysis [Recovered/Resolved]
  - Drug interaction [Recovered/Resolved]
